FAERS Safety Report 13267955 (Version 1)
Quarter: 2017Q1

REPORT INFORMATION
  Report Type: Spontaneous
  Country: US (occurrence: US)
  Receive Date: 20170224
  Receipt Date: 20170224
  Transmission Date: 20170428
  Serious: Yes (Life-Threatening)
  Sender: FDA-Public Use
  Company Number: None

PATIENT
  Age: 71 Year
  Sex: Male
  Weight: 86 kg

DRUGS (2)
  1. MEROPENEM. [Suspect]
     Active Substance: MEROPENEM
     Indication: SEPSIS
     Route: 058
     Dates: start: 20170126, end: 20170128
  2. MEROPENEM. [Suspect]
     Active Substance: MEROPENEM
     Indication: VASCULAR OPERATION
     Route: 058
     Dates: start: 20170126, end: 20170128

REACTIONS (2)
  - Anaemia [None]
  - Hepatic enzyme increased [None]

NARRATIVE: CASE EVENT DATE: 20170127
